FAERS Safety Report 9828495 (Version 1)
Quarter: 2014Q1

REPORT INFORMATION
  Report Type: Spontaneous
  Country: US (occurrence: US)
  Receive Date: 20140117
  Receipt Date: 20140117
  Transmission Date: 20141002
  Serious: No
  Sender: FDA-Public Use
  Company Number: US-009507513-1401USA003715

PATIENT
  Age: 59 Year
  Sex: Male

DRUGS (3)
  1. AMITRIPTYLINE HYDROCHLORIDE [Suspect]
     Indication: PAIN
     Dosage: 25 MG, HS
     Route: 048
  2. GABAPENTIN [Suspect]
     Indication: PAIN
     Route: 048
  3. MORPHINE [Suspect]
     Indication: PAIN
     Route: 048

REACTIONS (2)
  - Drug ineffective [Unknown]
  - Off label use [Unknown]
